FAERS Safety Report 13586131 (Version 5)
Quarter: 2017Q3

REPORT INFORMATION
  Report Type: Spontaneous
  Country: US (occurrence: US)
  Receive Date: 20170526
  Receipt Date: 20170920
  Transmission Date: 20171127
  Serious: No
  Sender: FDA-Public Use
  Company Number: US-PFIZER INC-2017226945

PATIENT
  Age: 58 Year
  Sex: Female
  Weight: 68 kg

DRUGS (3)
  1. AROMASIN [Suspect]
     Active Substance: EXEMESTANE
     Dosage: 25 MG, 1X/DAY (AFTER A MEAL)
     Route: 048
  2. AROMASIN [Suspect]
     Active Substance: EXEMESTANE
     Indication: BREAST CANCER
     Dosage: 25 MG, 1X/DAY (AFTER A MEAL)
     Route: 048
  3. AROMASIN [Suspect]
     Active Substance: EXEMESTANE
     Dosage: 25 MG, 1X/DAY (AFTER A MEAL)
     Route: 048

REACTIONS (7)
  - Incorrect dose administered [Unknown]
  - Insomnia [Unknown]
  - Intervertebral disc protrusion [Not Recovered/Not Resolved]
  - Blood urine present [Not Recovered/Not Resolved]
  - Renal cyst [Unknown]
  - Gastric cyst [Not Recovered/Not Resolved]
  - Malaise [Unknown]

NARRATIVE: CASE EVENT DATE: 20170410
